FAERS Safety Report 13637821 (Version 8)
Quarter: 2017Q3

REPORT INFORMATION
  Report Type: Report from Study
  Country: None (occurrence: BE)
  Receive Date: 20170609
  Receipt Date: 20170717
  Transmission Date: 20171127
  Serious: Yes (Hospitalization)
  Sender: FDA-Public Use
  Company Number: BE-ABBVIE-17P-013-1860823-00

PATIENT
  Sex: Male

DRUGS (24)
  1. SERETIDE [Concomitant]
     Active Substance: FLUTICASONE PROPIONATE\SALMETEROL XINAFOATE
     Indication: PRODUCT USED FOR UNKNOWN INDICATION
  2. ADVAGRAF [Concomitant]
     Active Substance: TACROLIMUS
     Indication: PRODUCT USED FOR UNKNOWN INDICATION
     Dosage: FORM STRENGTH : 1 AND 3MG
  3. XANAX [Concomitant]
     Active Substance: ALPRAZOLAM
     Indication: PRODUCT USED FOR UNKNOWN INDICATION
  4. DUODOPA [Suspect]
     Active Substance: CARBIDOPA\LEVODOPA
     Route: 050
     Dates: start: 20170124, end: 20170126
  5. DUODOPA [Suspect]
     Active Substance: CARBIDOPA\LEVODOPA
     Dosage: MD= 0.8 ML; CD= 1 ML/H DURING 16 HRS; EDA= 0.3 ML
     Route: 050
     Dates: start: 20170530, end: 20170602
  6. DUODOPA [Suspect]
     Active Substance: CARBIDOPA\LEVODOPA
     Dosage: MD= 0.4 ML; CD= 1.2 ML/H DURING 16 HRS; EDA=0.3 ML
     Route: 050
     Dates: start: 20170609, end: 20170612
  7. CELLCEPT [Concomitant]
     Active Substance: MYCOPHENOLATE MOFETIL\MYCOPHENOLATE MOFETIL HYDROCHLORIDE
     Indication: PRODUCT USED FOR UNKNOWN INDICATION
  8. DUODOPA [Suspect]
     Active Substance: CARBIDOPA\LEVODOPA
     Indication: PARKINSON^S DISEASE
     Route: 050
     Dates: start: 20170123, end: 20170124
  9. DUODOPA [Suspect]
     Active Substance: CARBIDOPA\LEVODOPA
     Dosage: AM=1.5ML, CD=1.2ML/HR DURING 16HRS, ED=0.3ML
     Route: 050
     Dates: start: 20170126, end: 20170126
  10. SPIRIVA [Concomitant]
     Active Substance: TIOTROPIUM BROMIDE MONOHYDRATE
     Indication: PRODUCT USED FOR UNKNOWN INDICATION
  11. DUODOPA [Suspect]
     Active Substance: CARBIDOPA\LEVODOPA
     Route: 050
     Dates: start: 20170602, end: 20170606
  12. DUODOPA [Suspect]
     Active Substance: CARBIDOPA\LEVODOPA
     Dosage: MD=0.4ML;CD=1.7ML/HR DURING 16HRS;EDA=0.3ML
     Route: 050
     Dates: start: 20170703, end: 20170706
  13. EMCONCOR [Concomitant]
     Active Substance: BISOPROLOL FUMARATE
     Indication: PRODUCT USED FOR UNKNOWN INDICATION
  14. MOTENS [Concomitant]
     Active Substance: LACIDIPINE
     Indication: PRODUCT USED FOR UNKNOWN INDICATION
  15. DUODOPA [Suspect]
     Active Substance: CARBIDOPA\LEVODOPA
     Dosage: MD= 0.4 ML; CD= 1 ML/H DURING 16 HRS; EDA=0.3 ML
     Route: 050
     Dates: start: 20170606, end: 20170609
  16. DUODOPA [Suspect]
     Active Substance: CARBIDOPA\LEVODOPA
     Dosage: MD=0.4ML?CD=1.4ML/HR DURING 16HRS?EDA=0.3ML
     Route: 050
     Dates: start: 20170612, end: 20170619
  17. DUODOPA [Suspect]
     Active Substance: CARBIDOPA\LEVODOPA
     Dosage: MD=0.4ML?CD=1.5ML/HR DURING 16HRS?EDA=0.3ML
     Route: 050
     Dates: start: 20170706, end: 20170714
  18. FLUOXETINE [Concomitant]
     Active Substance: FLUOXETINE HYDROCHLORIDE
     Indication: PRODUCT USED FOR UNKNOWN INDICATION
     Dates: end: 20170606
  19. DUODOPA [Suspect]
     Active Substance: CARBIDOPA\LEVODOPA
     Dosage: MD= 0.4 ML; CD= 1.6 ML/H DURING 16 HRS; EDA= 0.3 ML
     Route: 050
     Dates: start: 20170619, end: 20170626
  20. FOLAVIT [Concomitant]
     Indication: PRODUCT USED FOR UNKNOWN INDICATION
  21. MYSOLINE [Concomitant]
     Active Substance: PRIMIDONE
     Indication: PRODUCT USED FOR UNKNOWN INDICATION
  22. MOXONIDINE [Concomitant]
     Active Substance: MOXONIDINE
     Indication: PRODUCT USED FOR UNKNOWN INDICATION
  23. DUODOPA [Suspect]
     Active Substance: CARBIDOPA\LEVODOPA
     Dosage: MD= 0.4 ML; CD= 1.8ML/H DURING 16 HRS; EDA= 0.3 ML
     Route: 050
     Dates: start: 20170626, end: 20170703
  24. DUODOPA [Suspect]
     Active Substance: CARBIDOPA\LEVODOPA
     Route: 050
     Dates: start: 20170714

REACTIONS (9)
  - Mood swings [Unknown]
  - Stress [Unknown]
  - Malaise [Recovering/Resolving]
  - Dyskinesia [Not Recovered/Not Resolved]
  - Malaise [Unknown]
  - Dyskinesia [Recovered/Resolved]
  - Patient dissatisfaction with treatment [Unknown]
  - Tremor [Not Recovered/Not Resolved]
  - Depression [Recovering/Resolving]

NARRATIVE: CASE EVENT DATE: 2017
